FAERS Safety Report 11207582 (Version 1)
Quarter: 2015Q2

REPORT INFORMATION
  Report Type: Report from Study
  Country: US (occurrence: US)
  Receive Date: 20150622
  Receipt Date: 20150622
  Transmission Date: 20150821
  Serious: No
  Sender: FDA-Public Use
  Company Number: US-ABBVIE-15P-163-1371655-00

PATIENT
  Age: 57 Year
  Sex: Male

DRUGS (4)
  1. MODERIBA [Suspect]
     Active Substance: RIBAVIRIN
     Dosage: 600 MG (300 MG, 1 IN 12 HOURS)
     Route: 048
     Dates: start: 20150404, end: 20150405
  2. MODERIBA [Suspect]
     Active Substance: RIBAVIRIN
     Indication: PRODUCT USED FOR UNKNOWN INDICATION
     Route: 048
     Dates: start: 20150319, end: 20150402
  3. VIEKIRA PAK [Suspect]
     Active Substance: DASABUVIR\OMBITASVIR\PARITAPREVIR\RITONAVIR
     Indication: HEPATITIS C
     Dosage: 3 TABLETS IN AM + 1 TABLET IN EVENING
     Route: 048
     Dates: start: 20150319
  4. MODERIBA [Suspect]
     Active Substance: RIBAVIRIN
     Dosage: 600 MG (300 MG, 1 IN 12 HOURS)
     Route: 048
     Dates: start: 20150405

REACTIONS (7)
  - Constipation [Not Recovered/Not Resolved]
  - Chromaturia [Recovered/Resolved]
  - Chest pain [Recovered/Resolved]
  - Mucous stools [Unknown]
  - Haemoglobin decreased [Not Recovered/Not Resolved]
  - Headache [Recovered/Resolved]
  - Haematocrit decreased [Not Recovered/Not Resolved]

NARRATIVE: CASE EVENT DATE: 201503
